FAERS Safety Report 7023058-2 (Version None)
Quarter: 2010Q3

REPORT INFORMATION
  Report Type: 
  Country: None (occurrence: None)
  Receive Date: 20100930
  Receipt Date: 20100916
  Transmission Date: 20110219
  Serious: Yes (Other)
  Sender: FDA-Public Use
  Company Number: PHEH2008US00481

PATIENT
  Sex: Male

DRUGS (31)
  1. AREDIA [Suspect]
     Dosage: UNK
     Dates: start: 20000101
  2. ZOMETA [Suspect]
     Dosage: UNK
  3. ANTICOAGULANTS [Concomitant]
  4. PROSCAR [Concomitant]
     Dosage: 5 MG, UNK
     Route: 048
  5. QUININE SULFATE [Concomitant]
     Route: 048
  6. CEPHALEXIN [Concomitant]
     Route: 048
  7. LEVAQUIN [Concomitant]
  8. ATORVASTATIN CALCIUM [Concomitant]
  9. CELEBREX [Concomitant]
  10. CALCIUM [Concomitant]
  11. CYMBALTA [Concomitant]
  12. GABAPENTIN [Concomitant]
  13. TINZAPARIN SODIUM [Concomitant]
  14. INSULIN [Concomitant]
  15. THALOMID [Concomitant]
  16. LEUKINE [Concomitant]
  17. CALCITRIOL [Concomitant]
  18. CYCLOPHOSPHAMIDE [Concomitant]
  19. NEXIUM [Concomitant]
  20. MICRO-K [Concomitant]
  21. VIAGRA [Concomitant]
  22. REQUIP [Concomitant]
  23. VIVELLE-DOT [Concomitant]
     Dosage: 0.1 MG, QD
     Route: 062
  24. PROVIGIL [Concomitant]
  25. LIDODERM [Concomitant]
     Route: 062
  26. FLEXERIL [Concomitant]
     Dosage: 5 MG, QD
     Route: 048
  27. AMOXICILLIN [Concomitant]
     Dosage: UNK
  28. FINASTERIDE [Concomitant]
     Dosage: 5 MG
  29. LIPITOR [Concomitant]
     Dosage: 80 MG
  30. REVLIMID [Concomitant]
     Dosage: 5 MG
  31. MICRO-K [Concomitant]
     Dosage: UNK

REACTIONS (48)
  - AGRANULOCYTOSIS [None]
  - ANAEMIA [None]
  - AORTIC VALVE REPLACEMENT [None]
  - ARTHRALGIA [None]
  - ATRIAL FIBRILLATION [None]
  - BASAL CELL CARCINOMA [None]
  - BENIGN GASTRIC NEOPLASM [None]
  - BRADYCARDIA [None]
  - CARDIAC PACEMAKER INSERTION [None]
  - CATARACT [None]
  - CHEST PAIN [None]
  - CHOLECYSTECTOMY [None]
  - CHOLELITHIASIS [None]
  - DEPRESSION [None]
  - ERECTILE DYSFUNCTION [None]
  - FATIGUE [None]
  - HAEMATURIA [None]
  - HYPERSOMNIA [None]
  - INTERVERTEBRAL DISC DEGENERATION [None]
  - INTERVERTEBRAL DISC SPACE NARROWING [None]
  - ISCHAEMIA [None]
  - JOINT DISLOCATION [None]
  - LIGAMENT LAXITY [None]
  - MALAISE [None]
  - MALIGNANT MELANOMA IN SITU [None]
  - MENTAL DISORDER [None]
  - METASTASES TO BONE [None]
  - METASTASES TO SKIN [None]
  - MUSCLE STRAIN [None]
  - NEOPLASM MALIGNANT [None]
  - NEUROPATHY PERIPHERAL [None]
  - OSTEONECROSIS OF JAW [None]
  - OSTEOPOROSIS [None]
  - PAIN [None]
  - RENAL FAILURE [None]
  - RENAL IMPAIRMENT [None]
  - SCOLIOSIS [None]
  - SICK SINUS SYNDROME [None]
  - SINUS ARRHYTHMIA [None]
  - SLEEP APNOEA SYNDROME [None]
  - SPINAL DISORDER [None]
  - SQUAMOUS CELL CARCINOMA [None]
  - SUPRAVENTRICULAR EXTRASYSTOLES [None]
  - SYNCOPE [None]
  - TOOTH ABSCESS [None]
  - TOOTHACHE [None]
  - VENOUS THROMBOSIS [None]
  - VENTRICULAR TACHYCARDIA [None]
